FAERS Safety Report 5325364-6 (Version None)
Quarter: 2007Q2

REPORT INFORMATION
  Report Type: 
  Country: None (occurrence: None)
  Receive Date: 20070515
  Receipt Date: 20070508
  Transmission Date: 20071010
  Serious: Yes (Hospitalization, Disabling)
  Sender: FDA-Public Use
  Company Number: US-JNJFOC-20061201443

PATIENT
  Sex: Female
  Weight: 68.04 kg

DRUGS (3)
  1. ORTHO EVRA [Suspect]
     Indication: CONTRACEPTION
     Route: 062
     Dates: start: 20050415, end: 20060201
  2. MOTRIN [Concomitant]
     Indication: DRUG USE FOR UNKNOWN INDICATION
  3. VICODIN [Concomitant]
     Indication: DRUG USE FOR UNKNOWN INDICATION

REACTIONS (4)
  - INTRACRANIAL VENOUS SINUS THROMBOSIS [None]
  - LEUKOENCEPHALOPATHY [None]
  - MULTI-ORGAN FAILURE [None]
  - THROMBOPHLEBITIS SEPTIC [None]
